FAERS Safety Report 8399731-0 (Version None)
Quarter: 2012Q2

REPORT INFORMATION
  Report Type: 
  Country: None (occurrence: None)
  Receive Date: 20120531
  Receipt Date: 20120522
  Transmission Date: 20120825
  Serious: Yes (Other)
  Sender: FDA-Public Use
  Company Number: US-ASTRAZENECA-2012SE32813

PATIENT
  Age: 74 Year
  Sex: Female
  Weight: 54.4 kg

DRUGS (9)
  1. LIPITOR [Suspect]
     Indication: BLOOD TRIGLYCERIDES INCREASED
     Route: 065
     Dates: start: 20120301, end: 20120501
  2. LASIX [Concomitant]
     Indication: FLUID OVERLOAD
  3. NORVASC [Concomitant]
     Indication: BLOOD PRESSURE ABNORMAL
  4. PREVACID [Concomitant]
     Indication: GASTRIC DISORDER
     Dosage: DAILY
  5. CRESTOR [Suspect]
     Route: 048
  6. PAXIL [Concomitant]
  7. TOPROL-XL [Suspect]
     Route: 048
  8. DIGOXIN [Concomitant]
     Indication: CARDIAC DISORDER
  9. SYNTHROID [Concomitant]

REACTIONS (6)
  - ADVERSE DRUG REACTION [None]
  - BACK PAIN [None]
  - SPINAL PAIN [None]
  - ABDOMINAL PAIN UPPER [None]
  - MOBILITY DECREASED [None]
  - ARTHRALGIA [None]
